FAERS Safety Report 9945189 (Version 1)
Quarter: 2014Q1

REPORT INFORMATION
  Report Type: Report from Study
  Country: US (occurrence: US)
  Receive Date: 20140303
  Receipt Date: 20140303
  Transmission Date: 20141002
  Serious: No
  Sender: FDA-Public Use
  Company Number: US-ABBVIE-13P-163-1050422-00

PATIENT
  Sex: Female

DRUGS (3)
  1. HUMIRA [Suspect]
     Indication: PSORIASIS
     Route: 058
     Dates: start: 20121116
  2. METFORMIN [Concomitant]
     Indication: DIABETES MELLITUS
  3. ALLEGRA D [Concomitant]
     Indication: HYPERSENSITIVITY

REACTIONS (2)
  - Wrong technique in drug usage process [Recovered/Resolved]
  - Occupational exposure to product [Recovered/Resolved]
